FAERS Safety Report 9098939 (Version 1)
Quarter: 2013Q1

REPORT INFORMATION
  Report Type: Spontaneous
  Country: US (occurrence: US)
  Receive Date: 20130213
  Receipt Date: 20130213
  Transmission Date: 20140127
  Serious: No
  Sender: FDA-Public Use
  Company Number: US-PFIZER INC-2013054794

PATIENT
  Age: 63 Year
  Sex: Male
  Weight: 90.7 kg

DRUGS (6)
  1. TOBRAMYCIN [Suspect]
     Indication: CHRONIC OBSTRUCTIVE PULMONARY DISEASE
     Dosage: 1 MG, 2X/DAY
     Dates: end: 201301
  2. LORTAB [Concomitant]
     Indication: OSTEITIS DEFORMANS
     Dosage: 500 MG, UNK
  3. LORTAB [Concomitant]
     Indication: MYALGIA
  4. ALBUTEROL [Concomitant]
     Indication: BRONCHITIS
     Dosage: UNK, 4X/DAY
  5. IPRATROPIUM BROMIDE [Concomitant]
     Dosage: UNK, 4X/DAY
  6. BUDESONIDE [Concomitant]
     Dosage: UNK, 2X/DAY

REACTIONS (4)
  - Dyspnoea [Not Recovered/Not Resolved]
  - Sinus congestion [Not Recovered/Not Resolved]
  - Nasopharyngitis [Not Recovered/Not Resolved]
  - Productive cough [Not Recovered/Not Resolved]
